FAERS Safety Report 8077098-5 (Version None)
Quarter: 2012Q1

REPORT INFORMATION
  Report Type: 
  Country: None (occurrence: None)
  Receive Date: 20120127
  Receipt Date: 20120124
  Transmission Date: 20120608
  Serious: Yes (Death, Other)
  Sender: FDA-Public Use
  Company Number: PHHY2011VE105093

PATIENT
  Sex: Female

DRUGS (3)
  1. XOLAIR [Suspect]
     Indication: ASTHMA
     Dosage: 300 MG, QMO
     Dates: start: 20100901, end: 20110801
  2. FORADIL [Suspect]
     Dosage: 12 UG, Q8H
  3. AIRON [Concomitant]
     Dosage: 10 MG, QD

REACTIONS (6)
  - RESPIRATORY DISTRESS [None]
  - MALAISE [None]
  - EPILEPSY [None]
  - MYOCARDIAL INFARCTION [None]
  - FATIGUE [None]
  - LOSS OF CONSCIOUSNESS [None]
